FAERS Safety Report 8134275-2 (Version None)
Quarter: 2012Q1

REPORT INFORMATION
  Report Type: 
  Country: None (occurrence: None)
  Receive Date: 20120209
  Receipt Date: 20120131
  Transmission Date: 20120608
  Serious: Yes (Death, Hospitalization, Other)
  Sender: FDA-Public Use
  Company Number: 2012MA001383

PATIENT
  Age: 87 Year
  Sex: Male

DRUGS (5)
  1. CENTRUM [Concomitant]
  2. ARICEPT [Concomitant]
  3. COUMADIN [Concomitant]
  4. DILTIAZEM HCL [Concomitant]
  5. DIGOXIN [Suspect]
     Indication: PRODUCT USED FOR UNKNOWN INDICATION
     Dosage: 0.25 MG;QD;PO
     Route: 048
     Dates: start: 20061211, end: 20090713

REACTIONS (56)
  - ECONOMIC PROBLEM [None]
  - FALL [None]
  - JOINT RANGE OF MOTION DECREASED [None]
  - RENAL FAILURE CHRONIC [None]
  - RENAL FAILURE ACUTE [None]
  - CHRONIC OBSTRUCTIVE PULMONARY DISEASE [None]
  - INTERVERTEBRAL DISC DISORDER [None]
  - SUPRAVENTRICULAR TACHYCARDIA [None]
  - HAEMORRHAGE INTRACRANIAL [None]
  - AORTIC VALVE SCLEROSIS [None]
  - CARDIAC FAILURE CONGESTIVE [None]
  - HOSPICE CARE [None]
  - TRICUSPID VALVE INCOMPETENCE [None]
  - SINUS BRADYCARDIA [None]
  - METABOLIC ENCEPHALOPATHY [None]
  - HYPERKALAEMIA [None]
  - INTERNATIONAL NORMALISED RATIO INCREASED [None]
  - ALANINE AMINOTRANSFERASE INCREASED [None]
  - MULTIPLE INJURIES [None]
  - WEIGHT DECREASED [None]
  - HYPOTHYROIDISM [None]
  - SPINAL OSTEOARTHRITIS [None]
  - SUPRAVENTRICULAR EXTRASYSTOLES [None]
  - CARDIOMEGALY [None]
  - INTRACRANIAL PRESSURE INCREASED [None]
  - CAROTID ARTERY DISEASE [None]
  - ERECTILE DYSFUNCTION [None]
  - AMNESIA [None]
  - GAIT DISTURBANCE [None]
  - CEREBROVASCULAR ACCIDENT [None]
  - BLOOD CHOLESTEROL INCREASED [None]
  - PULMONARY VALVE INCOMPETENCE [None]
  - SYNCOPE [None]
  - MENTAL STATUS CHANGES [None]
  - AORTIC VALVE INCOMPETENCE [None]
  - BUNDLE BRANCH BLOCK RIGHT [None]
  - ABDOMINAL PAIN [None]
  - ORTHOSTATIC HYPOTENSION [None]
  - PERNICIOUS ANAEMIA [None]
  - WALKING AID USER [None]
  - HEPATIC ENZYME INCREASED [None]
  - BLOOD GLUCOSE INCREASED [None]
  - ATRIAL FLUTTER [None]
  - ATRIAL FIBRILLATION [None]
  - POLYARTHRITIS [None]
  - ANGINA PECTORIS [None]
  - CONDITION AGGRAVATED [None]
  - ASTHENIA [None]
  - ACUTE MYOCARDIAL INFARCTION [None]
  - VENTRICULAR EXTRASYSTOLES [None]
  - MITRAL VALVE INCOMPETENCE [None]
  - PULMONARY HYPERTENSION [None]
  - LOW DENSITY LIPOPROTEIN INCREASED [None]
  - CHOLELITHIASIS [None]
  - CAROTID ARTERY STENOSIS [None]
  - MITRAL VALVE DISEASE [None]
